FAERS Safety Report 12844506 (Version 1)
Quarter: 2016Q4

REPORT INFORMATION
  Report Type: Spontaneous
  Country: US (occurrence: US)
  Receive Date: 20161013
  Receipt Date: 20161013
  Transmission Date: 20170207
  Serious: No
  Sender: FDA-Public Use
  Company Number: US-ROCHE-1752689

PATIENT
  Age: 14 Year
  Sex: Male
  Weight: 97.1 kg

DRUGS (3)
  1. ZELBORAF [Suspect]
     Active Substance: VEMURAFENIB
     Indication: BRAIN NEOPLASM MALIGNANT
     Route: 065
     Dates: start: 20160421
  2. ZELBORAF [Suspect]
     Active Substance: VEMURAFENIB
     Indication: ASTROCYTOMA
  3. KEPPRA [Concomitant]
     Active Substance: LEVETIRACETAM
     Indication: CONVULSION PROPHYLAXIS
     Route: 048
     Dates: start: 20151202

REACTIONS (2)
  - Rash [Not Recovered/Not Resolved]
  - Contusion [Recovering/Resolving]

NARRATIVE: CASE EVENT DATE: 20160501
